FAERS Safety Report 7308484-6 (Version None)
Quarter: 2011Q1

REPORT INFORMATION
  Report Type: 
  Country: None (occurrence: None)
  Receive Date: 20110223
  Receipt Date: 20090826
  Transmission Date: 20110831
  Serious: No
  Sender: FDA-Public Use
  Company Number: 2009BI027380

PATIENT
  Age: 46 Year
  Sex: Female

DRUGS (1)
  1. TYSABRI [Suspect]
     Indication: MULTIPLE SCLEROSIS
     Route: 042
     Dates: start: 20090327, end: 20100813

REACTIONS (7)
  - BALANCE DISORDER [None]
  - LIMB INJURY [None]
  - SPEECH DISORDER [None]
  - FATIGUE [None]
  - GAIT DISTURBANCE [None]
  - FOOT FRACTURE [None]
  - ACCIDENT [None]
